FAERS Safety Report 6322120-7 (Version None)
Quarter: 2009Q3

REPORT INFORMATION
  Report Type: 
  Country: None (occurrence: None)
  Receive Date: 20090821
  Receipt Date: 20090821
  Transmission Date: 20100115
  Serious: Yes (Other)
  Sender: FDA-Public Use
  Company Number: None

PATIENT
  Age: 44 Year
  Sex: Male
  Weight: 88.905 kg

DRUGS (1)
  1. ADDERALL 20 [Suspect]
     Indication: ATTENTION DEFICIT/HYPERACTIVITY DISORDER
     Dosage: 20MG 2X DAILY PO
     Route: 048
     Dates: start: 20090801, end: 20090818

REACTIONS (3)
  - CONFUSIONAL STATE [None]
  - HEADACHE [None]
  - PRODUCT QUALITY ISSUE [None]
